FAERS Safety Report 5744041-0 (Version None)
Quarter: 2008Q2

REPORT INFORMATION
  Report Type: 
  Country: None (occurrence: None)
  Receive Date: 20080516
  Receipt Date: 20080502
  Transmission Date: 20081010
  Serious: Yes (Congenital Anomaly, Other)
  Sender: FDA-Public Use
  Company Number: 2008AL003732

PATIENT
  Sex: Male

DRUGS (4)
  1. SERTRALINE HYDROCHLORIDE [Suspect]
     Indication: DEPRESSION
     Dosage: 100 MG; QD; TRPL
     Route: 064
     Dates: start: 20041109, end: 20060201
  2. VENLAFAXINE HCL [Concomitant]
  3. AMOXICILLIN [Concomitant]
  4. CEPHALEXIN [Concomitant]

REACTIONS (7)
  - ABNORMAL PALMAR/PLANTAR CREASES [None]
  - CAESAREAN SECTION [None]
  - EAR MALFORMATION [None]
  - HEAD DEFORMITY [None]
  - MATERNAL DRUGS AFFECTING FOETUS [None]
  - POLYHYDRAMNIOS [None]
  - UNSTABLE FOETAL LIE [None]
